FAERS Safety Report 13001244 (Version 1)
Quarter: 2016Q4

REPORT INFORMATION
  Report Type: Spontaneous
  Country: US (occurrence: US)
  Receive Date: 20161206
  Receipt Date: 20161206
  Transmission Date: 20170207
  Serious: No
  Sender: FDA-Public Use
  Company Number: US-PFIZER INC-2016557742

PATIENT
  Age: 8 Year
  Sex: Male
  Weight: 48 kg

DRUGS (10)
  1. FLONASE [Concomitant]
     Active Substance: FLUTICASONE PROPIONATE
     Dosage: UNK UNK, DAILY; (1 SPRAY IN EACH NOSTRIL)
     Route: 045
  2. LEVOTHYROXINE. [Concomitant]
     Active Substance: LEVOTHYROXINE
     Indication: HYPOTHYROIDISM
     Dosage: 25 UG, DAILY
  3. LEVOTHROID [Concomitant]
     Active Substance: LEVOTHYROXINE SODIUM
     Dosage: 25 UG, 1X/DAY; (1 HR BEFORE BREAKFAST)
     Route: 048
  4. SYNTHROID [Concomitant]
     Active Substance: LEVOTHYROXINE SODIUM
     Indication: HYPOTHYROIDISM
     Dosage: 25 UG, 1X/DAY; (1 HR BEFORE BREAKFAST)
     Route: 048
  5. LOVAZA [Concomitant]
     Active Substance: OMEGA-3-ACID ETHYL ESTERS
     Dosage: 1 G, 2X/DAY
     Route: 048
  6. GENOTROPIN MQ [Suspect]
     Active Substance: SOMATROPIN
     Indication: HORMONE THERAPY
     Dosage: 0.4 MG, 1X/DAY; (EVERY NIGHT AT BEDTIME)
     Route: 058
     Dates: start: 20120904
  7. GENOTROPIN MQ [Suspect]
     Active Substance: SOMATROPIN
     Indication: PRADER-WILLI SYNDROME
  8. VITAMIN C [Concomitant]
     Active Substance: ASCORBIC ACID
     Dosage: 500 MG, DAILY
     Route: 048
  9. CELEXA [Concomitant]
     Active Substance: CITALOPRAM HYDROBROMIDE
     Dosage: 5 MG, DAILY
     Route: 048
  10. GENOTROPIN MQ [Suspect]
     Active Substance: SOMATROPIN
     Indication: GROWTH HORMONE DEFICIENCY

REACTIONS (10)
  - Abnormal behaviour [Unknown]
  - Precocious puberty [Unknown]
  - Tooth disorder [Unknown]
  - Poor quality sleep [Unknown]
  - Sleep apnoea syndrome [Unknown]
  - Secretion discharge [Unknown]
  - Weight increased [Unknown]
  - Fatigue [Unknown]
  - Aggression [Unknown]
  - Hyperphagia [Unknown]
